FAERS Safety Report 19979317 (Version 1)
Quarter: 2021Q4

REPORT INFORMATION
  Report Type: Report from Study
  Country: US (occurrence: US)
  Receive Date: 20211020
  Receipt Date: 20211020
  Transmission Date: 20220303
  Serious: No
  Sender: FDA-Public Use
  Company Number: US-HORIZON THERAPEUTICS-HZN-2021-001928

PATIENT
  Sex: Male

DRUGS (8)
  1. PROCYSBI [Suspect]
     Active Substance: CYSTEAMINE BITARTRATE
     Indication: Cystinosis
     Dosage: TWO 75 MG PACKETS TWICE DAILY. TOTAL DAILY DOSE 300 MG.
     Route: 065
  2. PROCYSBI [Suspect]
     Active Substance: CYSTEAMINE BITARTRATE
     Dosage: TWO 75 MG PACKETS AND TWO 25 MG CAPSULES BY MOUTH TWICE DAILY AND TOTAL DAILY DOSE 400 MG
     Route: 048
  3. LEVOTHYROXINE [Concomitant]
     Active Substance: LEVOTHYROXINE
     Route: 065
  4. CALCITRIOL [Concomitant]
     Active Substance: CALCITRIOL
  5. POTASSIUM [Concomitant]
     Active Substance: POTASSIUM
  6. INDOMETHACIN [Concomitant]
     Active Substance: INDOMETHACIN
  7. ONDANSETRON [Concomitant]
     Active Substance: ONDANSETRON
  8. LEVOCARNITINE [Concomitant]
     Active Substance: LEVOCARNITINE

REACTIONS (2)
  - Vomiting [Unknown]
  - Decreased appetite [Unknown]
